FAERS Safety Report 8011232-8 (Version None)
Quarter: 2011Q4

REPORT INFORMATION
  Report Type: 
  Country: None (occurrence: None)
  Receive Date: 20111227
  Receipt Date: 20111227
  Transmission Date: 20120403
  Serious: Yes (Hospitalization, Other)
  Sender: FDA-Public Use
  Company Number: None

PATIENT
  Age: 65 Year
  Sex: Male
  Weight: 139.7 kg

DRUGS (3)
  1. SEROQUEL [Suspect]
     Indication: BIPOLAR DISORDER
     Dosage: 125 MG
     Route: 048
     Dates: start: 20111129, end: 20111223
  2. SEROQUEL [Suspect]
     Indication: ABNORMAL BEHAVIOUR
     Dosage: 125 MG
     Route: 048
     Dates: start: 20111129, end: 20111223
  3. SEROQUEL [Suspect]
     Indication: INSOMNIA
     Dosage: 125 MG
     Route: 048
     Dates: start: 20111129, end: 20111223

REACTIONS (5)
  - FALL [None]
  - EXTRAPYRAMIDAL DISORDER [None]
  - OROPHARYNGEAL PAIN [None]
  - TARDIVE DYSKINESIA [None]
  - FEELING COLD [None]
